FAERS Safety Report 8201435 (Version 8)
Quarter: 2012Q4

REPORT INFORMATION
  Report Type: Report from Study
  Country: GB (occurrence: GB)
  Receive Date: 20111026
  Receipt Date: 20120914
  Transmission Date: 20130627
  Serious: Yes (Other)
  Sender: FDA-Public Use
  Company Number: GB-AMGEN-GBRCT2011054478

PATIENT
  Age: 30 Year
  Sex: Male

DRUGS (2)
  1. DENOSUMAB [Suspect]
     Indication: BONE GIANT CELL TUMOUR
     Dosage: 120 mg, q4wk
     Route: 058
     Dates: start: 20101118
  2. ERGOCALCIFEROL [Concomitant]
     Dosage: UNK UNK, qd
     Route: 048
     Dates: start: 20101118

REACTIONS (1)
  - Pneumothorax [Recovered/Resolved]
